FAERS Safety Report 6594085-4 (Version None)
Quarter: 2010Q1

REPORT INFORMATION
  Report Type: 
  Country: None (occurrence: None)
  Receive Date: 20100222
  Receipt Date: 20100212
  Transmission Date: 20100710
  Serious: Yes (Congenital Anomaly)
  Sender: FDA-Public Use
  Company Number: GXKR2010GB01816

PATIENT

DRUGS (2)
  1. MIRTAZAPINE [Suspect]
     Dosage: MATERNAL DOSE: 15 MG
     Route: 064
     Dates: start: 20060731
  2. CETRIZINE [Concomitant]
     Dosage: 10 MG, (MATERNAL DOSE)
     Route: 064
     Dates: start: 20090609

REACTIONS (2)
  - CONGENITAL MEGACOLON [None]
  - DRUG EXPOSURE DURING PREGNANCY [None]
